FAERS Safety Report 12668033 (Version 1)
Quarter: 2016Q3

REPORT INFORMATION
  Report Type: Spontaneous
  Country: NO (occurrence: NO)
  Receive Date: 20160819
  Receipt Date: 20160819
  Transmission Date: 20161109
  Serious: Yes (Other)
  Sender: FDA-Public Use
  Company Number: NO-ELI_LILLY_AND_COMPANY-NO201608005691

PATIENT
  Sex: Female

DRUGS (1)
  1. ZYPREXA [Suspect]
     Active Substance: OLANZAPINE
     Indication: PRODUCT USED FOR UNKNOWN INDICATION
     Dosage: UNK UNK, UNKNOWN
     Route: 065

REACTIONS (3)
  - Visual acuity reduced [Recovered/Resolved]
  - Eye disorder [Unknown]
  - Thrombosis [Unknown]
